FAERS Safety Report 10717256 (Version 3)
Quarter: 2015Q2

REPORT INFORMATION
  Report Type: Spontaneous
  Country: DK (occurrence: CH)
  Receive Date: 20150116
  Receipt Date: 20150601
  Transmission Date: 20150821
  Serious: Yes (Congenital Anomaly)
  Sender: FDA-Public Use
  Company Number: CH-FRI-1000073679

PATIENT
  Sex: Female

DRUGS (2)
  1. ESCITALOPRAM [Suspect]
     Active Substance: ESCITALOPRAM OXALATE
     Indication: PRODUCT USED FOR UNKNOWN INDICATION
     Dosage: 10 MG
     Route: 064
     Dates: start: 20130705
  2. XANAX [Suspect]
     Active Substance: ALPRAZOLAM
     Indication: PRODUCT USED FOR UNKNOWN INDICATION
     Route: 064

REACTIONS (5)
  - Atrial septal defect [Unknown]
  - Psychomotor skills impaired [Unknown]
  - Foetal exposure during pregnancy [Unknown]
  - Pulmonary valve stenosis [Unknown]
  - Premature baby [Unknown]
